FAERS Safety Report 8396178-8 (Version None)
Quarter: 2012Q2

REPORT INFORMATION
  Report Type: 
  Country: None (occurrence: None)
  Receive Date: 20120530
  Receipt Date: 20120521
  Transmission Date: 20120825
  Serious: Yes (Other)
  Sender: FDA-Public Use
  Company Number: JP-GLAXOSMITHKLINE-B0759255A

PATIENT
  Sex: Female

DRUGS (3)
  1. LAMICTAL [Suspect]
     Indication: BIPOLAR DISORDER
     Dosage: 100MG PER DAY
     Route: 048
     Dates: start: 20110916, end: 20111023
  2. ABILIFY [Concomitant]
     Indication: BIPOLAR DISORDER
     Dosage: 12MG PER DAY
     Route: 048
     Dates: start: 20110725
  3. DEPAS [Concomitant]
     Indication: BIPOLAR DISORDER
     Dosage: 2MG PER DAY
     Route: 048
     Dates: start: 20110721

REACTIONS (8)
  - PYREXIA [None]
  - DRUG HYPERSENSITIVITY [None]
  - RASH [None]
  - GENERALISED ERYTHEMA [None]
  - HUMAN HERPESVIRUS 6 INFECTION [None]
  - LYMPHADENOPATHY [None]
  - EOSINOPHIL COUNT INCREASED [None]
  - DRUG RASH WITH EOSINOPHILIA AND SYSTEMIC SYMPTOMS [None]
